FAERS Safety Report 8966624 (Version 1)
Quarter: 2012Q4

REPORT INFORMATION
  Report Type: 
  Country: US (occurrence: US)
  Receive Date: 20121217
  Receipt Date: 20121217
  Transmission Date: 20130627
  Serious: Yes (Other)
  Sender: FDA-Public Use
  Company Number: US-BAYER-2012-131897

PATIENT
  Age: 83 Year
  Sex: Male
  Weight: 73.02 kg

DRUGS (13)
  1. ALEVE GELCAP [Suspect]
     Indication: PAIN RELIEF
     Dosage: 2 DF, BID
     Route: 048
     Dates: start: 2009
  2. ALEVE CAPLET/TABLET,MIDOL EXTENDED RELIEF CAPLET [Suspect]
     Indication: PAIN RELIEF
     Dosage: UNK
     Route: 048
     Dates: start: 2009, end: 2009
  3. DOCUSATE [Concomitant]
     Dosage: 50 mg, UNK
  4. ISOSORBIDE MONONITRATE [Concomitant]
     Dosage: 30 mg, UNK
  5. LISINOPRIL [Concomitant]
     Dosage: 40 mg, UNK
  6. METOPROLOL TARTRATE [Concomitant]
     Dosage: 50 mg, UNK
  7. NIACIN [Concomitant]
     Dosage: 1500 mg, UNK
  8. OMEPRAZOLE [Concomitant]
     Dosage: 20 mg, UNK
  9. TERAZOSIN HYDROCHLORIDE [Concomitant]
     Dosage: 2 mg, UNK
  10. TRAMADOL HYDROCHLORIDE [Concomitant]
     Dosage: 50 mg, UNK
  11. HYDROCHLORIDE [Concomitant]
     Dosage: 5 mg, UNK
  12. WARFARIN [Concomitant]
  13. UNKNOWN ARTHRITIS MEDICATION [Concomitant]

REACTIONS (6)
  - Joint warmth [Not Recovered/Not Resolved]
  - Incorrect drug administration duration [None]
  - Drug ineffective [None]
  - Joint capsule rupture [Not Recovered/Not Resolved]
  - Drug ineffective [None]
  - Abasia [Not Recovered/Not Resolved]
